FAERS Safety Report 25347142 (Version 1)
Quarter: 2025Q2

REPORT INFORMATION
  Report Type: Spontaneous
  Country: US (occurrence: None)
  Receive Date: 20250521
  Receipt Date: 20250521
  Transmission Date: 20250717
  Serious: No
  Sender: FDA-CTU
  Company Number: None

PATIENT
  Age: 78 Year
  Sex: Male
  Weight: 91 kg

DRUGS (1)
  1. TIRZEPATIDE [Suspect]
     Active Substance: TIRZEPATIDE
     Route: 058
     Dates: start: 20250325, end: 20250427

REACTIONS (2)
  - Diarrhoea [None]
  - Myalgia [None]

NARRATIVE: CASE EVENT DATE: 20250427
